FAERS Safety Report 5147258-1 (Version None)
Quarter: 2006Q4

REPORT INFORMATION
  Report Type: 
  Country: None (occurrence: None)
  Receive Date: 20061103
  Receipt Date: 20061024
  Transmission Date: 20070319
  Serious: Yes (Death, Hospitalization, Other)
  Sender: FDA-Public Use
  Company Number: 2006121633

PATIENT
  Sex: Male
  Weight: 74.8435 kg

DRUGS (3)
  1. LIPITOR [Suspect]
     Dates: start: 20030301
  2. DRUG, UNSPECIFIED [Concomitant]
  3. PLAVIX [Concomitant]

REACTIONS (3)
  - CHEST PAIN [None]
  - CORONARY ARTERY STENOSIS [None]
  - HEPATIC NEOPLASM MALIGNANT [None]
